FAERS Safety Report 17801320 (Version 3)
Quarter: 2020Q3

REPORT INFORMATION
  Report Type: Spontaneous
  Country: CA (occurrence: CA)
  Receive Date: 20200519
  Receipt Date: 20200720
  Transmission Date: 20201102
  Serious: Yes (Other)
  Sender: FDA-Public Use
  Company Number: CA-ROCHE-2595664

PATIENT
  Age: 65 Year
  Sex: Female

DRUGS (19)
  1. CIMZIA [Suspect]
     Active Substance: CERTOLIZUMAB PEGOL
     Indication: RHEUMATOID ARTHRITIS
     Route: 058
  2. SIMPONI [Suspect]
     Active Substance: GOLIMUMAB
     Indication: RHEUMATOID ARTHRITIS
     Route: 058
  3. XELJANZ [Suspect]
     Active Substance: TOFACITINIB CITRATE
     Indication: RHEUMATOID ARTHRITIS
     Route: 048
  4. CODEINE [Concomitant]
     Active Substance: CODEINE
     Route: 065
  5. LYRICA [Concomitant]
     Active Substance: PREGABALIN
     Indication: RHEUMATOID ARTHRITIS
     Route: 048
  6. PREDNISONE. [Concomitant]
     Active Substance: PREDNISONE
     Route: 065
  7. ACETAMINOPHEN. [Concomitant]
     Active Substance: ACETAMINOPHEN
     Route: 065
  8. HYDROXYCHLOROQUINE SULFATE. [Suspect]
     Active Substance: HYDROXYCHLOROQUINE SULFATE
     Indication: RHEUMATOID ARTHRITIS
     Route: 065
  9. XELJANZ [Suspect]
     Active Substance: TOFACITINIB CITRATE
     Dosage: 2.0 YEARS
     Route: 048
  10. XELJANZ [Suspect]
     Active Substance: TOFACITINIB CITRATE
     Route: 048
  11. ARAVA [Concomitant]
     Active Substance: LEFLUNOMIDE
  12. HUMIRA [Suspect]
     Active Substance: ADALIMUMAB
     Indication: RHEUMATOID ARTHRITIS
     Route: 058
  13. ORENCIA [Suspect]
     Active Substance: ABATACEPT
     Indication: RHEUMATOID ARTHRITIS
     Route: 042
  14. ORENCIA [Suspect]
     Active Substance: ABATACEPT
     Route: 065
  15. RITUXIMAB. [Suspect]
     Active Substance: RITUXIMAB
     Indication: RHEUMATOID ARTHRITIS
     Route: 042
  16. ENBREL [Suspect]
     Active Substance: ETANERCEPT
     Route: 065
  17. ENBREL [Suspect]
     Active Substance: ETANERCEPT
     Indication: RHEUMATOID ARTHRITIS
     Route: 058
  18. HYDROXYCHLOROQUINE [Suspect]
     Active Substance: HYDROXYCHLOROQUINE
     Indication: RHEUMATOID ARTHRITIS
     Route: 065
  19. PREDNISONE. [Concomitant]
     Active Substance: PREDNISONE
     Route: 048

REACTIONS (11)
  - Contraindicated product administered [Unknown]
  - Drug ineffective [Unknown]
  - Hernia [Not Recovered/Not Resolved]
  - Herpes zoster [Not Recovered/Not Resolved]
  - Drug intolerance [Not Recovered/Not Resolved]
  - Therapeutic product effect decreased [Unknown]
  - Cataract operation [Not Recovered/Not Resolved]
  - Blood pressure increased [Not Recovered/Not Resolved]
  - Glaucoma [Not Recovered/Not Resolved]
  - Cataract [Not Recovered/Not Resolved]
  - Nasopharyngitis [Not Recovered/Not Resolved]
